FAERS Safety Report 24324254 (Version 1)
Quarter: 2024Q3

REPORT INFORMATION
  Report Type: Spontaneous
  Country: ID (occurrence: ID)
  Receive Date: 20240916
  Receipt Date: 20240916
  Transmission Date: 20241017
  Serious: Yes (Other)
  Sender: NOVITIUM PHARMA
  Company Number: ID-NOVITIUMPHARMA-2024IDNVP01799

PATIENT
  Age: 33 Year
  Sex: Female

DRUGS (5)
  1. TRIHEXYPHENIDYL [Suspect]
     Active Substance: TRIHEXYPHENIDYL
     Indication: Seizure
  2. DEXAMETHASONE [Suspect]
     Active Substance: DEXAMETHASONE
     Indication: Maternal therapy to enhance foetal lung maturity
     Route: 042
  3. CARBAMAZEPINE [Suspect]
     Active Substance: CARBAMAZEPINE
     Indication: Seizure
  4. HALOPERIDOL [Concomitant]
     Active Substance: HALOPERIDOL
     Indication: Seizure
  5. LEVETIRACETAM [Concomitant]
     Active Substance: LEVETIRACETAM
     Indication: Seizure

REACTIONS (2)
  - Threatened uterine rupture [Recovering/Resolving]
  - Exposure during pregnancy [Unknown]
